FAERS Safety Report 18350694 (Version 3)
Quarter: 2021Q1

REPORT INFORMATION
  Report Type: Spontaneous
  Country: US (occurrence: US)
  Receive Date: 20201006
  Receipt Date: 20210108
  Transmission Date: 20210419
  Serious: No
  Sender: FDA-Public Use
  Company Number: US-PFIZER INC-2020384319

PATIENT
  Age: 59 Year
  Sex: Male

DRUGS (1)
  1. XELJANZ XR [Suspect]
     Active Substance: TOFACITINIB CITRATE
     Dosage: 11 MG
     Dates: start: 202009

REACTIONS (6)
  - Pain [Unknown]
  - Oral candidiasis [Unknown]
  - Joint noise [Unknown]
  - Musculoskeletal stiffness [Unknown]
  - Swelling [Unknown]
  - Drug ineffective [Unknown]
